FAERS Safety Report 24261861 (Version 1)
Quarter: 2024Q3

REPORT INFORMATION
  Report Type: Other
  Country: CN (occurrence: CN)
  Receive Date: 20240829
  Receipt Date: 20240829
  Transmission Date: 20241016
  Serious: Yes (Hospitalization)
  Sender: Evive Biotechnology
  Company Number: CN-EVIVE BIOTECHNOLOGY SINGAPORE PTE. LTD.-EVI-CN-2024-000028

PATIENT
  Age: 45 Year
  Sex: Female
  Weight: 52 kg

DRUGS (1)
  1. RYZNEUTA [Suspect]
     Active Substance: EFBEMALENOGRASTIM ALFA-VUXW
     Indication: Neutropenia
     Dosage: 20 MILLIGRAM, QD
     Route: 058
     Dates: start: 20240809, end: 20240809

REACTIONS (2)
  - Urticaria [Recovering/Resolving]
  - Face oedema [Recovering/Resolving]

NARRATIVE: CASE EVENT DATE: 20240812
